FAERS Safety Report 16505451 (Version 1)
Quarter: 2019Q3

REPORT INFORMATION
  Report Type: Spontaneous
  Country: US (occurrence: US)
  Receive Date: 20190701
  Receipt Date: 20190701
  Transmission Date: 20191004
  Serious: No
  Sender: FDA-Public Use
  Company Number: US-SA-2019SA170902

PATIENT
  Age: 75 Year
  Sex: Female

DRUGS (1)
  1. TOUJEO [Suspect]
     Active Substance: INSULIN GLARGINE
     Indication: TYPE 2 DIABETES MELLITUS
     Dosage: 39 U, QD
     Route: 058

REACTIONS (4)
  - Wrong technique in product usage process [Unknown]
  - Back disorder [Unknown]
  - Product contamination physical [Unknown]
  - Intentional product use issue [Unknown]
